FAERS Safety Report 22067968 (Version 1)
Quarter: 2023Q1

REPORT INFORMATION
  Report Type: Spontaneous
  Country: CN (occurrence: None)
  Receive Date: 20230307
  Receipt Date: 20230307
  Transmission Date: 20230418
  Serious: Yes (Hospitalization, Other)
  Sender: FDA-Public Use
  Company Number: CN-Merck Healthcare KGaA-9386915

PATIENT
  Age: 65 Year
  Sex: Female
  Weight: 65 kg

DRUGS (2)
  1. METFORMIN [Suspect]
     Active Substance: METFORMIN HYDROCHLORIDE
     Indication: Blood glucose increased
     Route: 048
  2. INSULIN GLARGINE [Concomitant]
     Active Substance: INSULIN GLARGINE
     Indication: Blood glucose increased
     Dosage: 15U, ONCE BEFORE GOING TO BED
     Route: 058

REACTIONS (10)
  - Diabetic retinopathy [Unknown]
  - Diabetic microangiopathy [Unknown]
  - Diabetic nephropathy [Unknown]
  - Carotid arteriosclerosis [Unknown]
  - Hypertension [Unknown]
  - Diabetic neuropathy [Unknown]
  - Glycosylated haemoglobin increased [Unknown]
  - Blood glucose increased [Recovered/Resolved]
  - Blood triglycerides increased [Unknown]
  - Low density lipoprotein increased [Unknown]
